FAERS Safety Report 20303132 (Version 2)
Quarter: 2022Q1

REPORT INFORMATION
  Report Type: Report from Study
  Country: PT (occurrence: None)
  Receive Date: 20220106
  Receipt Date: 20220110
  Transmission Date: 20220423
  Serious: Yes (Death, Other)
  Sender: FDA-Public Use
  Company Number: PT-Merck Healthcare KGaA-9291372

PATIENT
  Age: 52 Year
  Sex: Female

DRUGS (1)
  1. REBIF [Suspect]
     Active Substance: INTERFERON BETA-1A
     Indication: Multiple sclerosis
     Route: 058
     Dates: start: 19950101

REACTIONS (2)
  - Lung neoplasm malignant [Fatal]
  - Metastases to bone [Unknown]

NARRATIVE: CASE EVENT DATE: 20211001
